FAERS Safety Report 13467165 (Version 1)
Quarter: 2017Q2

REPORT INFORMATION
  Report Type: Spontaneous
  Country: FR (occurrence: FR)
  Receive Date: 20170421
  Receipt Date: 20170421
  Transmission Date: 20170830
  Serious: Yes (Hospitalization, Other)
  Sender: FDA-Public Use
  Company Number: FR-ASTRAZENECA-2017SE40818

PATIENT
  Age: 466 Month
  Sex: Male
  Weight: 54 kg

DRUGS (7)
  1. LEPTICUR [Interacting]
     Active Substance: TROPATEPINE HYDROCHLORIDE
     Indication: PARKINSONISM
     Route: 048
     Dates: start: 20170111, end: 20170301
  2. SOLIAN [Suspect]
     Active Substance: AMISULPRIDE
     Indication: SCHIZOPHRENIA
     Route: 048
     Dates: start: 20160725
  3. SPASFON (PHLOROGLUCINOL, TRIMETHYLPHLOROGLUCINOL) [Concomitant]
     Active Substance: PHLOROGLUCINOL\1,3,5-TRIMETHOXYBENZENE
     Dosage: AS REQUIRED
  4. INEXIUM [Suspect]
     Active Substance: ESOMEPRAZOLE
     Route: 048
     Dates: start: 20170220
  5. DOMPERIDONE [Concomitant]
     Active Substance: DOMPERIDONE
     Dosage: 10 MG IN THE MORNING AND 10 MG AT NIGHT
     Route: 048
     Dates: start: 20170220
  6. LEPONEX [Concomitant]
     Active Substance: CLOZAPINE
     Dates: start: 201605
  7. EDUCTYL [Concomitant]
     Active Substance: POTASSIUM BITARTRATE\SODIUM BICARBONATE
     Dosage: AS REQUIRED

REACTIONS (3)
  - Ascites [Unknown]
  - Crohn^s disease [Unknown]
  - Drug interaction [Unknown]

NARRATIVE: CASE EVENT DATE: 201702
